FAERS Safety Report 5503439-6 (Version None)
Quarter: 2007Q4

REPORT INFORMATION
  Report Type: 
  Country: None (occurrence: None)
  Receive Date: 20071031
  Receipt Date: 20071023
  Transmission Date: 20080405
  Serious: Yes (Other)
  Sender: FDA-Public Use
  Company Number: GB-ELI_LILLY_AND_COMPANY-GB200710005479

PATIENT
  Age: 56 Year
  Sex: Male

DRUGS (3)
  1. FLUOXETINE [Suspect]
     Indication: DEPRESSION
     Dosage: 60 MG, UNK
     Route: 048
     Dates: start: 20050701
  2. FLUOXETINE [Suspect]
     Dosage: 40 MG, UNK
  3. FLUOXETINE [Suspect]
     Dosage: 20 MG, UNK

REACTIONS (2)
  - RASH GENERALISED [None]
  - SKIN EXFOLIATION [None]
